FAERS Safety Report 5765098-7 (Version None)
Quarter: 2008Q2

REPORT INFORMATION
  Report Type: 
  Country: None (occurrence: None)
  Receive Date: 20080610
  Receipt Date: 20080610
  Transmission Date: 20081010
  Serious: Yes (Life-Threatening)
  Sender: FDA-Public Use
  Company Number: None

PATIENT
  Age: 78 Year
  Sex: Female
  Weight: 80.7403 kg

DRUGS (2)
  1. DIGITEK   25 MGS  MYLAN PHARMACEUTICALS [Suspect]
     Indication: HEART RATE IRREGULAR
     Dosage: 1 DAILY PO
     Route: 048
     Dates: start: 20070925, end: 20080505
  2. DIGITEK   25 MGS  MYLAN PHARMACEUTICALS [Suspect]
     Indication: PALPITATIONS
     Dosage: 1 DAILY PO
     Route: 048
     Dates: start: 20070925, end: 20080505

REACTIONS (8)
  - ANOREXIA [None]
  - ASTHENIA [None]
  - DEPRESSION [None]
  - DIARRHOEA [None]
  - DIZZINESS [None]
  - FATIGUE [None]
  - VISION BLURRED [None]
  - WEIGHT DECREASED [None]
